FAERS Safety Report 4354081-4 (Version None)
Quarter: 2004Q2

REPORT INFORMATION
  Report Type: 
  Country: None (occurrence: None)
  Receive Date: 20040503
  Receipt Date: 20040415
  Transmission Date: 20050107
  Serious: Yes (Death, Hospitalization)
  Sender: FDA-Public Use
  Company Number: DSA_24267_2004

PATIENT
  Age: 93 Year
  Sex: Male

DRUGS (4)
  1. ENALAPRIL MALEATE [Suspect]
     Indication: HYPERTENSION
     Dosage: 10 MG BID PO
     Route: 048
  2. LASIX [Suspect]
     Indication: HYPERTENSION
     Dosage: 30 MG QD PO
     Route: 048
  3. ALBYL-E [Concomitant]
  4. SELO-ZOK [Concomitant]

REACTIONS (6)
  - BASE EXCESS [None]
  - HAEMOGLOBIN DECREASED [None]
  - HYPERKALAEMIA [None]
  - HYPOTENSION [None]
  - RENAL FAILURE [None]
  - TROPONIN INCREASED [None]
